FAERS Safety Report 8589612-1 (Version None)
Quarter: 2012Q3

REPORT INFORMATION
  Report Type: 
  Country: None (occurrence: None)
  Receive Date: 20120813
  Receipt Date: 20120810
  Transmission Date: 20120928
  Serious: Yes (Hospitalization)
  Sender: FDA-Public Use
  Company Number: DE-AMGEN-DEUCT2012048773

PATIENT
  Age: 61 Year
  Sex: Female

DRUGS (3)
  1. CISPLATIN [Concomitant]
     Indication: BILE DUCT CANCER
     Dosage: 25 MG/M2, UNK
     Route: 042
     Dates: start: 20120628
  2. PANITUMUMAB [Suspect]
     Indication: BILE DUCT CANCER
     Dosage: 9 MG/KG, UNK
     Route: 042
     Dates: start: 20120628
  3. GEMCITABINE HYDROCHLORIDE [Concomitant]
     Indication: BILE DUCT CANCER
     Dosage: 1000 MG/M2, UNK
     Route: 042
     Dates: start: 20120628

REACTIONS (1)
  - PNEUMONIA [None]
